FAERS Safety Report 26148364 (Version 2)
Quarter: 2025Q4

REPORT INFORMATION
  Report Type: Spontaneous
  Country: US (occurrence: US)
  Receive Date: 20251212
  Receipt Date: 20251230
  Transmission Date: 20260118
  Serious: Yes (Other)
  Sender: BRISTOL-MYERS SQUIBB COMPANY
  Company Number: US-BRISTOL-MYERS SQUIBB COMPANY-2025-164351

PATIENT
  Age: 67 Year
  Sex: Female

DRUGS (1)
  1. LENALIDOMIDE [Suspect]
     Active Substance: LENALIDOMIDE
     Indication: Plasma cell myeloma
     Dosage: TAKE 1 CAPSULE BY MOUTH AS DIRECTED ON DAYS 1-21 OF EACH 28 DAY CYCLE
     Route: 048

REACTIONS (5)
  - Pain [Unknown]
  - Depression [Unknown]
  - Red blood cell count decreased [Recovering/Resolving]
  - Asthenia [Unknown]
  - Thrombosis [Recovering/Resolving]
